FAERS Safety Report 4533069-4 (Version None)
Quarter: 2004Q4

REPORT INFORMATION
  Report Type: 
  Country: None (occurrence: None)
  Receive Date: 20041206
  Receipt Date: 20041015
  Transmission Date: 20050328
  Serious: No
  Sender: FDA-Public Use
  Company Number: USA041081204

PATIENT
  Age: 65 Year
  Sex: Female

DRUGS (10)
  1. CYMBALTA [Suspect]
     Indication: NEUROPATHY
     Dosage: 60 MG DAY
     Dates: start: 20041012
  2. ASPIRIN [Concomitant]
  3. PLAVIX [Concomitant]
  4. LISINOPRIL AND HYDROCHLOROTHIAZIDE [Concomitant]
  5. FOLIC ACID [Concomitant]
  6. VITAMIN B COMPLEX CAP [Concomitant]
  7. VITAMIN E [Concomitant]
  8. CELEBREX [Concomitant]
  9. PRILOSEC (OMEPRAZOLE RATIOPHARM) [Concomitant]
  10. AVANDAMET [Concomitant]

REACTIONS (7)
  - DRUG INEFFECTIVE [None]
  - ERYTHEMA [None]
  - FATIGUE [None]
  - HYPOAESTHESIA [None]
  - NEUROPATHY PERIPHERAL [None]
  - SOMNOLENCE [None]
  - STOMACH DISCOMFORT [None]
